FAERS Safety Report 18878944 (Version 1)
Quarter: 2021Q1

REPORT INFORMATION
  Report Type: Spontaneous
  Country: CN (occurrence: CN)
  Receive Date: 20210211
  Receipt Date: 20210211
  Transmission Date: 20210420
  Serious: Yes (Other)
  Sender: FDA-Public Use
  Company Number: NVSC2021CN028227

PATIENT
  Age: 57 Year
  Sex: Female
  Weight: 50 kg

DRUGS (2)
  1. RECOMBINANT HUMAN BRAIN NATRIURETIC PEPTIDE (NESIRITIDE) [Suspect]
     Active Substance: NESIRITIDE
     Indication: CARDIAC FAILURE CHRONIC
     Dosage: 0.5 G, BID (ROUTE: PUMP INJECTION)
     Route: 050
     Dates: start: 20200912, end: 20200912
  2. ENTRESTO [Suspect]
     Active Substance: SACUBITRIL\VALSARTAN
     Indication: CARDIAC FAILURE CHRONIC
     Dosage: 50 MG, BID
     Route: 048
     Dates: start: 20200911, end: 20200912

REACTIONS (1)
  - Shock [Recovering/Resolving]

NARRATIVE: CASE EVENT DATE: 20200912
